FAERS Safety Report 12718188 (Version 3)
Quarter: 2016Q4

REPORT INFORMATION
  Report Type: Spontaneous
  Country: US (occurrence: US)
  Receive Date: 20160906
  Receipt Date: 20161011
  Transmission Date: 20170207
  Serious: Yes (Other)
  Sender: FDA-Public Use
  Company Number: US-ELI_LILLY_AND_COMPANY-US201608012664

PATIENT
  Age: 41 Year
  Sex: Female

DRUGS (3)
  1. LETAIRIS [Suspect]
     Active Substance: AMBRISENTAN
     Indication: PRODUCT USED FOR UNKNOWN INDICATION
     Dosage: 5 MG, QD
     Route: 065
     Dates: start: 20160624
  2. XARELTO [Concomitant]
     Active Substance: RIVAROXABAN
  3. ADCIRCA [Suspect]
     Active Substance: TADALAFIL
     Indication: PRODUCT USED FOR UNKNOWN INDICATION
     Dosage: UNK, UNKNOWN
     Route: 065

REACTIONS (18)
  - Dysmenorrhoea [Unknown]
  - Dyspnoea [Not Recovered/Not Resolved]
  - Anger [Unknown]
  - Drug dose omission [Unknown]
  - Nasal discomfort [Unknown]
  - Pain [Unknown]
  - Insomnia [Unknown]
  - Vomiting [Unknown]
  - Lacrimation increased [Not Recovered/Not Resolved]
  - Eye disorder [Unknown]
  - Menometrorrhagia [Unknown]
  - Migraine [Not Recovered/Not Resolved]
  - Chest pain [Not Recovered/Not Resolved]
  - Epistaxis [Not Recovered/Not Resolved]
  - Localised oedema [Unknown]
  - Cardiac failure [Unknown]
  - Sinus congestion [Not Recovered/Not Resolved]
  - Oedema peripheral [Unknown]
